FAERS Safety Report 4821950-8 (Version None)
Quarter: 2005Q4

REPORT INFORMATION
  Report Type: 
  Country: None (occurrence: None)
  Receive Date: 20051103
  Receipt Date: 20051025
  Transmission Date: 20060501
  Serious: Yes (Hospitalization)
  Sender: FDA-Public Use
  Company Number: 2005-UK-02158UK

PATIENT
  Age: 82 Year
  Sex: Male

DRUGS (17)
  1. MORPHINE [Suspect]
     Dosage: 10-20 MG BD TWICE DAILY PO
     Route: 048
  2. DIGOXIN [Concomitant]
  3. LANSOPRAZOLE [Concomitant]
  4. MONOMAX (ISOSORBIDE MONONITRATE) [Concomitant]
  5. WARFARIN SODIUM [Concomitant]
  6. SIMVASTATIN [Concomitant]
  7. ZOPICLONE (ZOPICLONE) [Concomitant]
  8. FEXOFENADINE HCL [Concomitant]
  9. LUMIGAN [Concomitant]
  10. MOVICOL [Concomitant]
  11. ADCAL [Concomitant]
  12. PREGABALIN (PREGABALIN) [Concomitant]
  13. GAVISCON (GAVISCON /01405501/) [Concomitant]
  14. CO-AMILOFRUSE (FRUMIL) [Concomitant]
  15. ENSURE PLUS (ENSURE PLUS) [Concomitant]
  16. GLANDOSANE [Concomitant]
  17. PARACETAMOL (PARACETAMOL) [Concomitant]

REACTIONS (2)
  - MIOSIS [None]
  - RESPIRATORY RATE DECREASED [None]
